FAERS Safety Report 5157060-2 (Version None)
Quarter: 2006Q4

REPORT INFORMATION
  Report Type: 
  Country: None (occurrence: None)
  Receive Date: 20061127
  Receipt Date: 20060905
  Transmission Date: 20070319
  Serious: Yes (Life-Threatening, Hospitalization, Other)
  Sender: FDA-Public Use
  Company Number: CA-ELI_LILLY_AND_COMPANY-CA200609001095

PATIENT
  Age: 24 Year
  Sex: Female

DRUGS (6)
  1. ZYPREXA ZYDIS [Suspect]
     Indication: SCHIZOPHRENIA, PARANOID TYPE
     Dosage: 10 MG, DAILY (1/D)
     Route: 048
     Dates: start: 20060310, end: 20060312
  2. ZYPREXA ZYDIS [Suspect]
     Dosage: 20 MG, DAILY (1/D)
     Route: 048
     Dates: start: 20060313
  3. CANNABIS [Concomitant]
     Dates: end: 20060311
  4. VITAMINS [Concomitant]
     Indication: PREGNANCY
     Dosage: UNK, UNK
     Dates: start: 20060320
  5. FERROUS SULFATE TAB [Concomitant]
  6. NICOTINE [Concomitant]

REACTIONS (6)
  - ALCOHOLISM [None]
  - ANTEPARTUM HAEMORRHAGE [None]
  - CAESAREAN SECTION [None]
  - DRUG EXPOSURE DURING PREGNANCY [None]
  - MATERNAL USE OF ILLICIT DRUGS [None]
  - PREMATURE RUPTURE OF MEMBRANES [None]
